FAERS Safety Report 24034592 (Version 1)
Quarter: 2024Q2

REPORT INFORMATION
  Report Type: Spontaneous
  Country: US (occurrence: None)
  Receive Date: 20240628
  Receipt Date: 20240628
  Transmission Date: 20240716
  Serious: Yes (Disabling)
  Sender: FDA-Public Use
  Company Number: None

PATIENT
  Age: 25 Year
  Sex: Male
  Weight: 76.5 kg

DRUGS (7)
  1. FINASTERIDE [Suspect]
     Active Substance: FINASTERIDE
     Indication: Alopecia
     Dates: start: 20190505, end: 20190525
  2. FINASTERIDE [Suspect]
     Active Substance: FINASTERIDE
     Indication: Prophylaxis
  3. HUMIRA [Concomitant]
     Active Substance: ADALIMUMAB
  4. FLUOXEITINE [Concomitant]
  5. C.D. [Concomitant]
  6. METHYLCOBALAMIN [Concomitant]
     Active Substance: METHYLCOBALAMIN
  7. TESTOSTERONE INCREASING SUPPLEMENTS [Concomitant]

REACTIONS (6)
  - Libido decreased [None]
  - Therapy cessation [None]
  - Sensitive skin [None]
  - Erectile dysfunction [None]
  - Sexual dysfunction [None]
  - Depression [None]

NARRATIVE: CASE EVENT DATE: 20190505
